FAERS Safety Report 8883697 (Version 1)
Quarter: 2012Q4

REPORT INFORMATION
  Report Type: 
  Country: US (occurrence: US)
  Receive Date: 20121102
  Receipt Date: 20121102
  Transmission Date: 20130627
  Serious: No
  Sender: FDA-Public Use
  Company Number: US-GLAXOSMITHKLINE-A0989701A

PATIENT
  Age: 80 Year
  Sex: Female

DRUGS (4)
  1. HORIZANT [Suspect]
     Indication: RESTLESS LEGS SYNDROME
     Dosage: 600MG At night
     Route: 048
     Dates: start: 20120729, end: 20120813
  2. NEXIUM [Concomitant]
  3. DIOVAN [Concomitant]
  4. ATENOLOL [Concomitant]

REACTIONS (4)
  - Dizziness [Recovering/Resolving]
  - Depression [Unknown]
  - Balance disorder [Unknown]
  - Disorientation [Unknown]
